FAERS Safety Report 9445516 (Version 1)
Quarter: 2013Q3

REPORT INFORMATION
  Report Type: Spontaneous
  Country: FR (occurrence: FR)
  Receive Date: 20130807
  Receipt Date: 20130807
  Transmission Date: 20140515
  Serious: Yes (Hospitalization)
  Sender: FDA-Public Use
  Company Number: FR-ROCHE-1257555

PATIENT
  Age: 61 Year
  Sex: Male

DRUGS (12)
  1. RIVOTRIL [Suspect]
     Indication: CONVULSION
     Dosage: 4 DROPS/MORNING, 6 DROPS/EVENING
     Route: 048
  2. DUROGESIC [Suspect]
     Indication: PAIN
     Dosage: 16.8MG/42CM2
     Route: 062
     Dates: end: 20130614
  3. ZELITREX [Suspect]
     Indication: HERPES VIRUS INFECTION
     Route: 048
  4. EUPRESSYL [Suspect]
     Indication: HYPERTENSION
     Route: 048
  5. LOXEN LP [Suspect]
     Indication: HYPERTENSION
     Route: 048
  6. KARDEGIC [Suspect]
     Indication: PRODUCT USED FOR UNKNOWN INDICATION
     Route: 048
  7. XATRAL [Suspect]
     Indication: PRODUCT USED FOR UNKNOWN INDICATION
     Route: 048
  8. INEXIUM [Suspect]
     Indication: GASTROOESOPHAGEAL REFLUX DISEASE
     Route: 048
  9. TIORFAN [Suspect]
     Indication: DIARRHOEA
     Route: 048
  10. CARDENSIEL [Suspect]
     Indication: CARDIAC FAILURE
     Route: 048
  11. CYMBALTA [Suspect]
     Indication: PRODUCT USED FOR UNKNOWN INDICATION
     Route: 048
  12. WELLVONE [Concomitant]
     Dosage: 2 SPOONS/DAY
     Route: 048

REACTIONS (2)
  - Coma [Recovered/Resolved with Sequelae]
  - Grand mal convulsion [Recovered/Resolved]
